FAERS Safety Report 9782659 (Version 8)
Quarter: 2014Q2

REPORT INFORMATION
  Report Type: Report from Study
  Country: DE (occurrence: DE)
  Receive Date: 20131226
  Receipt Date: 20140528
  Transmission Date: 20141212
  Serious: Yes (Life-Threatening, Hospitalization)
  Sender: FDA-Public Use
  Company Number: DE-PFIZER INC-2013363805

PATIENT
  Age: 70 Year
  Sex: Male
  Weight: 69 kg

DRUGS (4)
  1. INLYTA [Suspect]
     Indication: RENAL CELL CARCINOMA
     Dosage: 5 MG, 2X/DAY (1-0-1)
     Dates: start: 20131019, end: 20131215
  2. METOHEXAL [Concomitant]
     Indication: HYPERTENSION
     Dosage: 100 MG, UNK
     Route: 048
  3. CANDESARTAN [Concomitant]
     Indication: HYPERTENSION
     Dosage: 16/12.5
     Route: 048
  4. LEVEMIR INSULIN [Concomitant]
     Indication: DIABETES MELLITUS
     Dosage: UNK
     Route: 058

REACTIONS (1)
  - Stomatitis [Recovered/Resolved]
